FAERS Safety Report 7762891-6 (Version None)
Quarter: 2011Q3

REPORT INFORMATION
  Report Type: 
  Country: None (occurrence: None)
  Receive Date: 20110920
  Receipt Date: 20110909
  Transmission Date: 20111222
  Serious: Yes (Death, Hospitalization, Other)
  Sender: FDA-Public Use
  Company Number: US-BAXTER-2011BH028819

PATIENT
  Sex: Male

DRUGS (2)
  1. DIANEAL [Suspect]
     Indication: PERITONEAL DIALYSIS
     Route: 033
     Dates: end: 20110724
  2. DIANEAL [Suspect]
     Indication: PERITONEAL DIALYSIS
     Route: 033
     Dates: end: 20110724

REACTIONS (5)
  - CONDITION AGGRAVATED [None]
  - ANGIOPATHY [None]
  - PERIPHERAL VASCULAR DISORDER [None]
  - INFECTIOUS PERITONITIS [None]
  - LOCALISED INFECTION [None]
